FAERS Safety Report 8423949-1 (Version None)
Quarter: 2012Q2

REPORT INFORMATION
  Report Type: 
  Country: None (occurrence: None)
  Receive Date: 20120608
  Receipt Date: 20120525
  Transmission Date: 20120825
  Serious: No
  Sender: FDA-Public Use
  Company Number: US-ASTRAZENECA-2012SE26426

PATIENT
  Age: 72 Year
  Sex: Male

DRUGS (13)
  1. CAPRELSA [Suspect]
     Indication: THYROID CANCER
     Route: 048
  2. LASIX [Concomitant]
  3. METFORMIN HCL [Concomitant]
  4. POTASSIUM CHLORIDE CR [Concomitant]
  5. VITAMIN B COMPLEX C [Concomitant]
  6. SYNTHROID [Concomitant]
  7. MAGNESIUM OXIDE [Concomitant]
  8. ASPIRIN CHILDRENS [Concomitant]
  9. LEVOFLOXACIN [Concomitant]
  10. MULTIVITAMIN/FLUORIDE [Concomitant]
  11. NEXAVAR [Concomitant]
  12. COREG [Concomitant]
  13. FENOFIBRATE (MICRONIZED) [Concomitant]

REACTIONS (4)
  - BLOOD PRESSURE INCREASED [None]
  - SUNBURN [None]
  - DIARRHOEA [None]
  - RASH [None]
